FAERS Safety Report 7251099-9 (Version None)
Quarter: 2011Q1

REPORT INFORMATION
  Report Type: 
  Country: None (occurrence: None)
  Receive Date: 20110128
  Receipt Date: 20110117
  Transmission Date: 20110831
  Serious: Yes (Hospitalization)
  Sender: FDA-Public Use
  Company Number: IL-TEVA-264190ISR

PATIENT
  Age: 16 Year

DRUGS (15)
  1. TACROLIMUS [Suspect]
  2. MYCOPHENOLATE MOFETIL [Suspect]
  3. INFLIXIMAB [Suspect]
  4. POSACONAZOLE [Concomitant]
  5. PREDNISONE [Suspect]
  6. AMPHOTERICIN B [Suspect]
     Route: 042
  7. METHYLPREDNISOLONE [Suspect]
  8. CASPOFUNGIN [Suspect]
  9. METHYLPREDNISOLONE [Suspect]
  10. PAROMOMYCIN [Concomitant]
  11. FLUCONAZOLE [Suspect]
  12. ANTITHYMOCYTE IMMUNOGLOBULIN [Suspect]
  13. SIROLIMUS [Suspect]
  14. AMPHOTERICIN B [Suspect]
     Route: 042
  15. NITAZOXANIDE [Concomitant]

REACTIONS (6)
  - NEUTROPENIA [None]
  - GASTROINTESTINAL FUNGAL INFECTION [None]
  - ZYGOMYCOSIS [None]
  - TRANSPLANT REJECTION [None]
  - LEUKOENCEPHALOPATHY [None]
  - LYMPHOPENIA [None]
